FAERS Safety Report 21018698 (Version 1)
Quarter: 2022Q2

REPORT INFORMATION
  Report Type: Spontaneous
  Country: US (occurrence: None)
  Receive Date: 20220628
  Receipt Date: 20220628
  Transmission Date: 20220720
  Serious: Yes (Hospitalization)
  Sender: FDA-Public Use
  Company Number: None

PATIENT
  Sex: Female

DRUGS (2)
  1. ZEJULA [Suspect]
     Active Substance: NIRAPARIB
     Indication: Ovarian cancer
     Dosage: 200MG ONCE DAILY ORAL?
     Route: 048
     Dates: start: 20220607
  2. ZEJULA [Suspect]
     Active Substance: NIRAPARIB
     Indication: Metastasis

REACTIONS (1)
  - Cough [None]
